FAERS Safety Report 24208428 (Version 1)
Quarter: 2024Q3

REPORT INFORMATION
  Report Type: Spontaneous
  Country: DE (occurrence: DE)
  Receive Date: 20240814
  Receipt Date: 20240814
  Transmission Date: 20241017
  Serious: Yes (Other)
  Sender: DR REDDYS
  Company Number: None

PATIENT
  Age: 38 Year
  Sex: Male
  Weight: 65 kg

DRUGS (4)
  1. OXYCODONE HYDROCHLORIDE [Suspect]
     Active Substance: OXYCODONE HYDROCHLORIDE
     Indication: Small fibre neuropathy
     Dosage: 40MG IN THE MORNING?40 MG EXTENDED-RELEASE TABLETS?02-JUL-2024
     Route: 048
     Dates: end: 20240721
  2. OXYCODONE HYDROCHLORIDE [Suspect]
     Active Substance: OXYCODONE HYDROCHLORIDE
     Indication: Polyneuropathy
     Dosage: 20MG IN THE EVENING?20 MG EXTENDED-RELEASE TABLETS??02-JUL-2024
     Route: 048
     Dates: end: 20240721
  3. PREGABALIN [Suspect]
     Active Substance: PREGABALIN
     Indication: Small fibre neuropathy
     Dosage: 50MG IN THE EVENING?50 MG HARD CAPSULES
     Route: 048
     Dates: start: 20130101, end: 20240721
  4. PREGABALIN [Suspect]
     Active Substance: PREGABALIN
     Indication: Polyneuropathy

REACTIONS (12)
  - Polyneuropathy [Not Recovered/Not Resolved]
  - Gastrointestinal pain [Not Recovered/Not Resolved]
  - Pruritus [Recovering/Resolving]
  - Sensory disturbance [Recovering/Resolving]
  - Somnolence [Recovered/Resolved]
  - Condition aggravated [Not Recovered/Not Resolved]
  - Neuralgia [Not Recovered/Not Resolved]
  - Dizziness [Recovered/Resolved]
  - Therapeutic product effect increased [Recovered/Resolved]
  - Feeling of body temperature change [Recovering/Resolving]
  - Burning sensation [Recovering/Resolving]
  - Asthenia [Recovered/Resolved]

NARRATIVE: CASE EVENT DATE: 20231001
